FAERS Safety Report 16683183 (Version 1)
Quarter: 2019Q3

REPORT INFORMATION
  Report Type: Spontaneous
  Country: US (occurrence: US)
  Receive Date: 20190808
  Receipt Date: 20190808
  Transmission Date: 20191004
  Serious: No
  Sender: FDA-Public Use
  Company Number: US-MILLICENT HOLDINGS LTD.-MILL20192330

PATIENT
  Age: 36 Year
  Sex: Female
  Weight: 90.8 kg

DRUGS (1)
  1. FEMRING [Suspect]
     Active Substance: ESTRADIOL ACETATE
     Indication: OESTROGEN REPLACEMENT THERAPY
     Dosage: 0.05 MG/DAY
     Route: 067
     Dates: start: 20190519, end: 20190519

REACTIONS (3)
  - Hypertension [Recovered/Resolved]
  - Nausea [Recovered/Resolved]
  - Dizziness [Recovered/Resolved]

NARRATIVE: CASE EVENT DATE: 20190519
